FAERS Safety Report 15732016 (Version 1)
Quarter: 2018Q4

REPORT INFORMATION
  Report Type: Spontaneous
  Country: US (occurrence: US)
  Receive Date: 20181217
  Receipt Date: 20181217
  Transmission Date: 20190205
  Serious: No
  Sender: FDA-Public Use
  Company Number: US-NOVOPROD-624156

PATIENT
  Sex: Female

DRUGS (1)
  1. OZEMPIC [Suspect]
     Active Substance: SEMAGLUTIDE
     Indication: WEIGHT DECREASED
     Dosage: UNK
     Route: 058
     Dates: start: 20180926

REACTIONS (2)
  - Pollakiuria [Unknown]
  - Off label use [Unknown]

NARRATIVE: CASE EVENT DATE: 20180926
